FAERS Safety Report 14526841 (Version 2)
Quarter: 2018Q3

REPORT INFORMATION
  Report Type: Spontaneous
  Country: SK (occurrence: SK)
  Receive Date: 20180213
  Receipt Date: 20180828
  Transmission Date: 20181010
  Serious: Yes (Other)
  Sender: FDA-Public Use
  Company Number: SK-MYLANLABS-2018M1008357

PATIENT
  Age: 62 Year
  Sex: Male

DRUGS (2)
  1. GEMCITABINE [Suspect]
     Active Substance: GEMCITABINE\GEMCITABINE HYDROCHLORIDE
     Indication: PANCREATIC CARCINOMA METASTATIC
     Dosage: 3000 MG/M2 DAILY; ON 1., 8., 15 DAY EVERY 28 DAYS
     Route: 065
  2. PACLITAXEL. [Suspect]
     Active Substance: PACLITAXEL
     Indication: PANCREATIC CARCINOMA METASTATIC
     Dosage: 375 MG/M2 DAILY; ON 1., 8., 15 DAY EVERY 28 DAYS
     Route: 065

REACTIONS (3)
  - Fatigue [Recovered/Resolved]
  - Gastrointestinal toxicity [Unknown]
  - Pancytopenia [Unknown]
